FAERS Safety Report 14032108 (Version 6)
Quarter: 2024Q1

REPORT INFORMATION
  Report Type: Spontaneous
  Country: AT (occurrence: None)
  Receive Date: 20171003
  Receipt Date: 20240327
  Transmission Date: 20240410
  Serious: Yes (Other)
  Sender: FDA-Public Use
  Company Number: 2017SE98392

PATIENT
  Age: 42 Year
  Sex: Male
  Weight: 89 kg

DRUGS (28)
  1. SEROQUEL [Suspect]
     Active Substance: QUETIAPINE FUMARATE
     Indication: Sleep disorder
     Route: 048
     Dates: start: 20150317, end: 20150317
  2. SEROQUEL [Suspect]
     Active Substance: QUETIAPINE FUMARATE
     Indication: Sleep disorder
     Route: 048
     Dates: start: 20150318
  3. MORPHINE SULFATE [Suspect]
     Active Substance: MORPHINE SULFATE
     Indication: Sleep disorder
     Dates: start: 2014
  4. ZOLPIDEM TARTRATE [Suspect]
     Active Substance: ZOLPIDEM TARTRATE
     Indication: Sleep disorder
     Dosage: 10 MG, UNK
     Dates: start: 20150317, end: 20150322
  5. ZOLPIDEM TARTRATE [Suspect]
     Active Substance: ZOLPIDEM TARTRATE
     Indication: Sleep disorder
     Dosage: 20 MG, UNK
     Dates: start: 20150323, end: 20150329
  6. MOCLOBEMIDE [Suspect]
     Active Substance: MOCLOBEMIDE
     Indication: Product used for unknown indication
     Dates: start: 2015, end: 20150322
  7. TRAZODONE HYDROCHLORIDE [Suspect]
     Active Substance: TRAZODONE HYDROCHLORIDE
     Indication: Sleep disorder
     Dates: start: 2015, end: 20150316
  8. TRAZODONE HYDROCHLORIDE [Suspect]
     Active Substance: TRAZODONE HYDROCHLORIDE
     Indication: Sleep disorder
     Dates: start: 20150317
  9. VALPROIC ACID [Suspect]
     Active Substance: VALPROIC ACID
     Dates: start: 2015
  10. LYRICA [Suspect]
     Active Substance: PREGABALIN
     Indication: Sleep disorder
     Dosage: 300 MG, UNK
     Dates: start: 20150317, end: 20150317
  11. LYRICA [Suspect]
     Active Substance: PREGABALIN
     Indication: Sleep disorder
     Dates: start: 20150318, end: 20150318
  12. LYRICA [Suspect]
     Active Substance: PREGABALIN
     Indication: Sleep disorder
     Dosage: 450 MG, UNK
     Dates: start: 20150319
  13. TRANYLCYPROMINE SULFATE\TRIFLUOPERAZINE HYDROCHLORIDE [Suspect]
     Active Substance: TRANYLCYPROMINE SULFATE\TRIFLUOPERAZINE HYDROCHLORIDE
     Indication: Sleep disorder
     Dates: start: 20150323, end: 20150406
  14. TRANYLCYPROMINE SULFATE\TRIFLUOPERAZINE HYDROCHLORIDE [Suspect]
     Active Substance: TRANYLCYPROMINE SULFATE\TRIFLUOPERAZINE HYDROCHLORIDE
     Indication: Sleep disorder
     Dates: start: 20150407, end: 20150413
  15. TRANYLCYPROMINE SULFATE\TRIFLUOPERAZINE HYDROCHLORIDE [Suspect]
     Active Substance: TRANYLCYPROMINE SULFATE\TRIFLUOPERAZINE HYDROCHLORIDE
     Indication: Sleep disorder
     Dates: start: 20150414
  16. CHLORAL HYDRATE [Suspect]
     Active Substance: CHLORAL HYDRATE
     Indication: Sleep disorder
     Dates: start: 20150320, end: 20150320
  17. CHLORAL HYDRATE [Suspect]
     Active Substance: CHLORAL HYDRATE
     Indication: Sleep disorder
     Dates: start: 20150321, end: 20150321
  18. CHLORAL HYDRATE [Suspect]
     Active Substance: CHLORAL HYDRATE
     Indication: Sleep disorder
     Dates: start: 20150322, end: 20150322
  19. FERROUS SULFATE [Suspect]
     Active Substance: FERROUS SULFATE
     Dates: start: 2015
  20. NICOTINE [Suspect]
     Active Substance: NICOTINE
     Indication: Product used for unknown indication
     Route: 062
     Dates: start: 20150321
  21. PANTOPRAZOLE SODIUM [Suspect]
     Active Substance: PANTOPRAZOLE SODIUM
     Indication: Sleep disorder
     Dates: start: 2015
  22. DOMINAL (PROTHIPENDYL HYDROCHLORIDE) [Concomitant]
     Active Substance: PROTHIPENDYL HYDROCHLORIDE
     Indication: Sleep disorder
     Dates: start: 20150319, end: 20150319
  23. DOMINAL (PROTHIPENDYL HYDROCHLORIDE) [Concomitant]
     Active Substance: PROTHIPENDYL HYDROCHLORIDE
     Indication: Sleep disorder
     Dates: start: 20150323, end: 20150323
  24. DOMINAL (PROTHIPENDYL HYDROCHLORIDE) [Concomitant]
     Active Substance: PROTHIPENDYL HYDROCHLORIDE
     Indication: Sleep disorder
     Dates: start: 20150331, end: 20150331
  25. DOMINAL (PROTHIPENDYL HYDROCHLORIDE) [Concomitant]
     Active Substance: PROTHIPENDYL HYDROCHLORIDE
     Indication: Sleep disorder
     Dates: start: 20150404, end: 20150404
  26. DOMINAL (PROTHIPENDYL HYDROCHLORIDE) [Concomitant]
     Active Substance: PROTHIPENDYL HYDROCHLORIDE
     Indication: Sleep disorder
     Dates: start: 20150408, end: 20150408
  27. DOMINAL (PROTHIPENDYL HYDROCHLORIDE) [Concomitant]
     Active Substance: PROTHIPENDYL HYDROCHLORIDE
     Indication: Sleep disorder
     Dates: start: 20150409, end: 20150410
  28. DOMINAL (PROTHIPENDYL HYDROCHLORIDE) [Concomitant]
     Active Substance: PROTHIPENDYL HYDROCHLORIDE
     Indication: Sleep disorder
     Dates: start: 20150413, end: 20150413

REACTIONS (9)
  - Disorientation [Recovered/Resolved]
  - Pollakiuria [Unknown]
  - Sleep disorder [Unknown]
  - Confusional state [Recovered/Resolved]
  - Depressed mood [Unknown]
  - Nervousness [Unknown]
  - Oedema peripheral [Recovered/Resolved]
  - Restlessness [Unknown]
  - Off label use [Not Recovered/Not Resolved]

NARRATIVE: CASE EVENT DATE: 20150101
